FAERS Safety Report 16433948 (Version 2)
Quarter: 2019Q3

REPORT INFORMATION
  Report Type: Spontaneous
  Country: JP (occurrence: JP)
  Receive Date: 20190614
  Receipt Date: 20190703
  Transmission Date: 20191004
  Serious: Yes (Other)
  Sender: FDA-Public Use
  Company Number: JP-ASTRAZENECA-2019SE84532

PATIENT
  Age: 69 Year
  Sex: Male

DRUGS (3)
  1. DURVALUMAB. [Suspect]
     Active Substance: DURVALUMAB
     Indication: LUNG ADENOCARCINOMA STAGE III
     Dosage: 10 MG/M2, EVERY 2 WEEKS
     Route: 041
  2. LOXONIN [Concomitant]
     Active Substance: LOXOPROFEN SODIUM
     Route: 048
  3. TAKECAB [Concomitant]
     Active Substance: VONOPRAZAN FUMURATE
     Route: 065

REACTIONS (1)
  - Myelitis [Recovering/Resolving]

NARRATIVE: CASE EVENT DATE: 20181106
